FAERS Safety Report 18591201 (Version 2)
Quarter: 2020Q4

REPORT INFORMATION
  Report Type: Spontaneous
  Country: ES (occurrence: ES)
  Receive Date: 20201208
  Receipt Date: 20201214
  Transmission Date: 20210114
  Serious: Yes (Hospitalization, Other)
  Sender: FDA-Public Use
  Company Number: ES-MYLANLABS-2020M1099762

PATIENT
  Age: 32 Year
  Sex: Female

DRUGS (5)
  1. HYDROXYCHLOROQUINE [Interacting]
     Active Substance: HYDROXYCHLOROQUINE
     Indication: COVID-19
     Dosage: 400 MG LOADING DOSE EVERY 12 HOURS ON THE FIRST DAY
     Route: 065
  2. CEFDITOREN [Interacting]
     Active Substance: CEFDITOREN
     Indication: COVID-19
     Dosage: 400 MG EVERY 12 HOURS
     Route: 065
  3. OMEPRAZOLE. [Concomitant]
     Active Substance: OMEPRAZOLE
     Indication: HIATUS HERNIA
     Dosage: 20 MG EVERY 12 HOURS
     Route: 065
  4. AZITHROMYCIN ANHYDROUS. [Suspect]
     Active Substance: AZITHROMYCIN ANHYDROUS
     Indication: COVID-19
     Dosage: 500 MG EVERY 24 HOURS
     Route: 065
  5. HYDROXYCHLOROQUINE [Interacting]
     Active Substance: HYDROXYCHLOROQUINE
     Dosage: 200 MG EVERY 12 HOURS (FIRST DAY DOSE CHARGE)
     Route: 065

REACTIONS (10)
  - COVID-19 [Unknown]
  - Extrasystoles [Recovered/Resolved]
  - Product use in unapproved indication [Unknown]
  - Cardiac failure chronic [Unknown]
  - Mitral valve incompetence [Unknown]
  - Cardiac failure [Unknown]
  - Off label use [Unknown]
  - Drug interaction [Unknown]
  - Dyspnoea exertional [Unknown]
  - Tachycardia [Recovered/Resolved]
